FAERS Safety Report 16394288 (Version 1)
Quarter: 2019Q3

REPORT INFORMATION
  Report Type: Spontaneous
  Country: AE (occurrence: AE)
  Receive Date: 20190604
  Receipt Date: 20190604
  Transmission Date: 20191004
  Serious: Yes (Other)
  Sender: FDA-Public Use
  Company Number: None

PATIENT
  Age: 4 Year
  Sex: Male
  Weight: 16 kg

DRUGS (1)
  1. OMNICEF [Suspect]
     Active Substance: CEFDINIR

REACTIONS (1)
  - Urticaria [None]

NARRATIVE: CASE EVENT DATE: 20190601
